FAERS Safety Report 6072973-5 (Version None)
Quarter: 2009Q1

REPORT INFORMATION
  Report Type: 
  Country: None (occurrence: None)
  Receive Date: 20090205
  Receipt Date: 20081006
  Transmission Date: 20090719
  Serious: Yes (Other)
  Sender: FDA-Public Use
  Company Number: 2-1008-23

PATIENT
  Age: 75 Year
  Sex: Female

DRUGS (5)
  1. DERMA-SMOOTHE/FS [Suspect]
     Indication: PSORIASIS
     Dosage: TOPICAL
     Route: 061
  2. PREMARIN [Concomitant]
  3. PERMETHRIN [Concomitant]
  4. TRIAMCINOLONE [Concomitant]
  5. LAMISIL [Concomitant]

REACTIONS (1)
  - BURNING SENSATION [None]
